FAERS Safety Report 7010930-2 (Version None)
Quarter: 2010Q3

REPORT INFORMATION
  Report Type: 
  Country: None (occurrence: None)
  Receive Date: 20100923
  Receipt Date: 20100923
  Transmission Date: 20110219
  Serious: No
  Sender: FDA-Public Use
  Company Number: None

PATIENT
  Sex: Female
  Weight: 61.2356 kg

DRUGS (1)
  1. SYNTHROID [Suspect]
     Dosage: 50 MCG 1 A DAY ORAL
     Route: 048
     Dates: start: 20090101, end: 20100101

REACTIONS (3)
  - ALOPECIA [None]
  - DRUG INTERACTION [None]
  - OVERDOSE [None]
